FAERS Safety Report 7471701-6 (Version None)
Quarter: 2011Q2

REPORT INFORMATION
  Report Type: 
  Country: None (occurrence: None)
  Receive Date: 20110502
  Receipt Date: 20110419
  Transmission Date: 20111010
  Serious: Yes (Hospitalization)
  Sender: FDA-Public Use
  Company Number: 1000019336

PATIENT
  Age: 21 Year
  Sex: Female

DRUGS (6)
  1. TEMESTA (LORAZEPAM) (TABLETS) (LORAZEPAM) [Concomitant]
  2. ESCITALOPRAM [Suspect]
     Indication: EMOTIONAL DISORDER
     Dosage: 20 MG (20 MG, 1 IN 1 D), ORAL
     Route: 048
     Dates: end: 20100629
  3. ESCITALOPRAM [Suspect]
     Indication: EMOTIONAL DISORDER
     Dosage: 10 MG (10 MG, 1 IN 1 D), ORAL
     Route: 048
     Dates: start: 20100630, end: 20100708
  4. DEPAKINE (VALPROIC ACID)(TABLETS) (VALPROIC ACID) [Concomitant]
  5. SEROQUEL XR [Suspect]
     Indication: EMOTIONAL DISORDER
     Dosage: 350 MG (350 MG, 1 IN 1 D), 100 MG (100 MG,1 IN 1 D)
     Dates: end: 20100602
  6. SEROQUEL XR [Suspect]
     Indication: EMOTIONAL DISORDER
     Dosage: 350 MG (350 MG, 1 IN 1 D), 100 MG (100 MG,1 IN 1 D)
     Dates: start: 20100603, end: 20100629

REACTIONS (3)
  - BREAST PAIN [None]
  - GALACTORRHOEA [None]
  - BREAST SWELLING [None]
